FAERS Safety Report 10645520 (Version 2)
Quarter: 2015Q1

REPORT INFORMATION
  Report Type: Report from Study
  Country: DE (occurrence: DE)
  Receive Date: 20141211
  Receipt Date: 20150119
  Transmission Date: 20150720
  Serious: Yes (Hospitalization, Other)
  Sender: FDA-Public Use
  Company Number: DE-ABBVIE-14K-062-1318521-00

PATIENT
  Age: 29 Year
  Sex: Female
  Weight: 50 kg

DRUGS (6)
  1. HUMIRA [Suspect]
     Active Substance: ADALIMUMAB
     Indication: CROHN^S DISEASE
     Route: 058
     Dates: start: 20140410
  2. HUMIRA [Suspect]
     Active Substance: ADALIMUMAB
     Route: 058
  3. LAMUNA [Suspect]
     Active Substance: DESOGESTREL\ETHINYL ESTRADIOL
     Indication: PRODUCT USED FOR UNKNOWN INDICATION
     Route: 065
  4. CORTISONE [Concomitant]
     Active Substance: CORTISONE\HYDROCORTISONE
     Indication: PRODUCT USED FOR UNKNOWN INDICATION
     Dosage: 3-5 MG DAILY
  5. HUMIRA [Suspect]
     Active Substance: ADALIMUMAB
     Route: 058
     Dates: start: 20140824, end: 20140824
  6. MARCUMAR [Suspect]
     Active Substance: PHENPROCOUMON
     Indication: PRODUCT USED FOR UNKNOWN INDICATION
     Route: 065

REACTIONS (21)
  - Abdominal pain upper [Recovering/Resolving]
  - Pulmonary embolism [Recovered/Resolved]
  - Mesenteric abscess [Unknown]
  - Coagulation factor IX level decreased [Unknown]
  - Coagulation factor VIII level increased [Unknown]
  - Pleurisy [Unknown]
  - Infection [Recovering/Resolving]
  - Prothrombin level decreased [Unknown]
  - Pulmonary oedema [Recovered/Resolved]
  - Coagulopathy [Unknown]
  - Prothrombin time prolonged [Unknown]
  - Haemoptysis [Unknown]
  - Liver disorder [Unknown]
  - Leukocytosis [Unknown]
  - Von Willebrand^s factor activity increased [Unknown]
  - Infarction [Unknown]
  - Gingival bleeding [Unknown]
  - Protein C decreased [Unknown]
  - Von Willebrand^s factor antigen increased [Unknown]
  - C-reactive protein increased [Unknown]
  - Protein S decreased [Unknown]

NARRATIVE: CASE EVENT DATE: 2014
